FAERS Safety Report 21633291 (Version 2)
Quarter: 2022Q4

REPORT INFORMATION
  Report Type: Spontaneous
  Country: FR (occurrence: FR)
  Receive Date: 20221123
  Receipt Date: 20221216
  Transmission Date: 20230113
  Serious: Yes (Other)
  Sender: FDA-Public Use
  Company Number: FR-GLAXOSMITHKLINE-FR2022EME173033

PATIENT

DRUGS (1)
  1. BELANTAMAB MAFODOTIN [Suspect]
     Active Substance: BELANTAMAB MAFODOTIN
     Indication: Plasma cell myeloma refractory
     Dosage: 2.5 MG, Z, EVERY 3 WEEKS
     Dates: start: 202105

REACTIONS (3)
  - Hepatitis [Unknown]
  - Cardiac failure [Unknown]
  - Primary amyloidosis [Unknown]
